FAERS Safety Report 16288222 (Version 1)
Quarter: 2019Q2

REPORT INFORMATION
  Report Type: Spontaneous
  Country: US (occurrence: US)
  Receive Date: 20190508
  Receipt Date: 20190508
  Transmission Date: 20190711
  Serious: No
  Sender: FDA-Public Use
  Company Number: US-PARAGONBIOTECK-2019-US-001404

PATIENT
  Age: 70 Year
  Sex: Female
  Weight: 51.71 kg

DRUGS (2)
  1. PHENYLEPHRINE HYDROCHLORIDE OPHTHALMIC [Suspect]
     Active Substance: PHENYLEPHRINE HYDROCHLORIDE
     Indication: OPHTHALMOLOGICAL EXAMINATION
     Dosage: TWICE IN ONE DAY
  2. PROPARACAINE [Suspect]
     Active Substance: PROPARACAINE
     Indication: OPHTHALMOLOGICAL EXAMINATION
     Dosage: TWO TIMES IN ONE DAY
     Dates: start: 20160822, end: 20160822

REACTIONS (7)
  - Feeling abnormal [Unknown]
  - Cataract [Recovered/Resolved]
  - Vision blurred [Unknown]
  - Superficial injury of eye [Recovered/Resolved]
  - Vitreous floaters [Unknown]
  - Balance disorder [Unknown]
  - Eye pain [Unknown]

NARRATIVE: CASE EVENT DATE: 20160822
